FAERS Safety Report 18451623 (Version 4)
Quarter: 2021Q1

REPORT INFORMATION
  Report Type: Spontaneous
  Country: US (occurrence: US)
  Receive Date: 20201102
  Receipt Date: 20210312
  Transmission Date: 20210419
  Serious: No
  Sender: FDA-Public Use
  Company Number: US-SA-2020SA306559

PATIENT
  Age: 44 Year
  Sex: Male

DRUGS (8)
  1. DUPIXENT [Suspect]
     Active Substance: DUPILUMAB
     Indication: DERMATITIS ATOPIC
  2. MAGNESIUM [Concomitant]
     Active Substance: MAGNESIUM
     Dosage: 100 MG
  3. DUPIXENT [Suspect]
     Active Substance: DUPILUMAB
     Indication: DYSHIDROTIC ECZEMA
  4. PSEUDOCATALASE [Concomitant]
  5. CALCIUM + VIT D [Concomitant]
     Active Substance: CALCIUM\VITAMIN D
  6. TACROLIMUS. [Suspect]
     Active Substance: TACROLIMUS
     Dosage: 100 MG
  7. DUPIXENT [Suspect]
     Active Substance: DUPILUMAB
     Indication: SHIGELLA INFECTION
     Dosage: 300 MG, QOW
     Route: 058
     Dates: start: 20200804
  8. ZINC. [Concomitant]
     Active Substance: ZINC
     Dosage: 1566 MG

REACTIONS (18)
  - Pain in extremity [Unknown]
  - Pruritus [Unknown]
  - Dermatitis atopic [Unknown]
  - Condition aggravated [Recovering/Resolving]
  - Pain in extremity [Not Recovered/Not Resolved]
  - Arthralgia [Not Recovered/Not Resolved]
  - Musculoskeletal stiffness [Not Recovered/Not Resolved]
  - Erythema [Unknown]
  - Joint stiffness [Unknown]
  - Product use in unapproved indication [Unknown]
  - Dry skin [Unknown]
  - Impaired healing [Unknown]
  - Product dose omission issue [Unknown]
  - Skin haemorrhage [Unknown]
  - Rash erythematous [Not Recovered/Not Resolved]
  - Skin discolouration [Not Recovered/Not Resolved]
  - Skin weeping [Unknown]
  - Scab [Unknown]

NARRATIVE: CASE EVENT DATE: 2020
